FAERS Safety Report 23402217 (Version 2)
Quarter: 2024Q1

REPORT INFORMATION
  Report Type: Report from Study
  Country: TR (occurrence: TR)
  Receive Date: 20240115
  Receipt Date: 20240117
  Transmission Date: 20240409
  Serious: Yes (Hospitalization, Other)
  Sender: FDA-Public Use
  Company Number: TR-ABBVIE-5586213

PATIENT
  Sex: Male
  Weight: 60 kg

DRUGS (2)
  1. CARBIDOPA\LEVODOPA [Suspect]
     Active Substance: CARBIDOPA\LEVODOPA
     Indication: Parkinson^s disease
     Dosage: MORNING DOSE (ML): 6.80 CONTINIOUS DOSE (ML): 2.60 EXTRA DOSE (ML): 2.00
     Route: 050
     Dates: start: 20180327, end: 20221125
  2. CARBIDOPA\LEVODOPA [Suspect]
     Active Substance: CARBIDOPA\LEVODOPA
     Dosage: MORNING DOSE (ML): 6.50 CONTINIOUS DOSE (ML): 2.20 EXTRA DOSE (ML): 1.50
     Route: 050
     Dates: start: 20221125

REACTIONS (1)
  - Inguinal hernia [Recovered/Resolved]
